FAERS Safety Report 9796788 (Version 5)
Quarter: 2014Q4

REPORT INFORMATION
  Report Type: Spontaneous
  Country: US (occurrence: US)
  Receive Date: 20140103
  Receipt Date: 20141119
  Transmission Date: 20150529
  Serious: Yes (Hospitalization)
  Sender: FDA-Public Use
  Company Number: US-TMC-CABO-13003666

PATIENT
  Age: 67 Year
  Sex: Female
  Weight: 48.2 kg

DRUGS (15)
  1. POTASSIUM [Concomitant]
     Active Substance: POTASSIUM
  2. CEFUROXIME AXETIL. [Concomitant]
     Active Substance: CEFUROXIME AXETIL
  3. SYNTHROID [Concomitant]
     Active Substance: LEVOTHYROXINE SODIUM
  4. HYDROCODONE [Concomitant]
     Active Substance: HYDROCODONE
  5. LOMUSTINE. [Concomitant]
     Active Substance: LOMUSTINE
  6. COMETRIQ [Suspect]
     Active Substance: CABOZANTINIB S-MALATE
     Indication: THYROID CANCER
     Dosage: 140 MG, QD
     Route: 048
     Dates: start: 20130408, end: 20140410
  7. COMETRIQ [Suspect]
     Active Substance: CABOZANTINIB S-MALATE
     Dosage: 100 MG, QD
     Route: 048
     Dates: start: 20130613, end: 20131023
  8. ZOMETA [Suspect]
     Active Substance: ZOLEDRONIC ACID
  9. AUGMENTIN [Concomitant]
     Active Substance: AMOXICILLIN\CLAVULANATE POTASSIUM
  10. AMBIEN [Concomitant]
     Active Substance: ZOLPIDEM TARTRATE
  11. IRON [Concomitant]
     Active Substance: IRON
  12. COMETRIQ [Suspect]
     Active Substance: CABOZANTINIB S-MALATE
     Dosage: 60 MG, QD
     Route: 048
     Dates: start: 20131025, end: 201410
  13. IBUPROFEN. [Concomitant]
     Active Substance: IBUPROFEN
  14. AMOXICILLIN. [Concomitant]
     Active Substance: AMOXICILLIN
  15. CALCIUM [Concomitant]
     Active Substance: CALCIUM

REACTIONS (12)
  - Oral infection [Unknown]
  - Malaise [Unknown]
  - Jaw fracture [Unknown]
  - Oral discomfort [Unknown]
  - Tongue blistering [Not Recovered/Not Resolved]
  - Skin disorder [Unknown]
  - Fatigue [Unknown]
  - Hypokalaemia [Unknown]
  - Iron deficiency anaemia [Unknown]
  - Diarrhoea [Unknown]
  - Palmar-plantar erythrodysaesthesia syndrome [Unknown]
  - Thrombocytopenia [Unknown]

NARRATIVE: CASE EVENT DATE: 20131127
